FAERS Safety Report 24984718 (Version 1)
Quarter: 2025Q1

REPORT INFORMATION
  Report Type: Spontaneous
  Country: NL (occurrence: NL)
  Receive Date: 20250219
  Receipt Date: 20250219
  Transmission Date: 20250409
  Serious: Yes (Other)
  Sender: TEVA
  Company Number: None

PATIENT
  Age: 35 Year
  Sex: Female
  Weight: 48 kg

DRUGS (1)
  1. QUETIAPINE [Suspect]
     Active Substance: QUETIAPINE
     Indication: Depression
     Dosage: 1 PIECE ONCE A DAY, TABLET FO  / BRAND NAME NOT SPECIFIED
     Route: 048
     Dates: start: 20240121

REACTIONS (11)
  - Suicidal ideation [Not Recovered/Not Resolved]
  - Pain in extremity [Not Recovered/Not Resolved]
  - Confusional state [Not Recovered/Not Resolved]
  - Panic reaction [Not Recovered/Not Resolved]
  - Vision blurred [Not Recovered/Not Resolved]
  - Slow response to stimuli [Not Recovered/Not Resolved]
  - Condition aggravated [Not Recovered/Not Resolved]
  - Sensory overload [Not Recovered/Not Resolved]
  - Hyperacusis [Not Recovered/Not Resolved]
  - Accommodation disorder [Not Recovered/Not Resolved]
  - Paraesthesia [Not Recovered/Not Resolved]
